FAERS Safety Report 9759830 (Version 1)
Quarter: 2013Q4

REPORT INFORMATION
  Report Type: Not Available
  Country: CA (occurrence: CA)
  Receive Date: 20131216
  Receipt Date: 20131216
  Transmission Date: 20140711
  Serious: Yes (Life-Threatening)
  Sender: FDA-Public Use
  Company Number: CA-BEH-2013039503

PATIENT
  Age: 5 Year
  Sex: Female

DRUGS (8)
  1. HIZENTRA [Suspect]
     Route: 058
  2. CELEXA [Concomitant]
  3. CELEBREX [Concomitant]
  4. MEDROXYPROGESTERONE [Concomitant]
  5. PARIET [Concomitant]
  6. PLAVIX [Concomitant]
  7. SULFATRIM [Concomitant]
  8. ZOPICLONE [Concomitant]

REACTIONS (1)
  - Breast cancer recurrent [Unknown]
